FAERS Safety Report 15390221 (Version 2)
Quarter: 2019Q2

REPORT INFORMATION
  Report Type: Report from Study
  Country: US (occurrence: US)
  Receive Date: 20180917
  Receipt Date: 20190404
  Transmission Date: 20190711
  Serious: Yes (Hospitalization, Other)
  Sender: FDA-Public Use
  Company Number: PHEH2018US030608

PATIENT
  Sex: Female
  Weight: 70.75 kg

DRUGS (6)
  1. COSENTYX [Suspect]
     Active Substance: SECUKINUMAB
     Dosage: 300 MG, QMO
     Route: 058
     Dates: start: 20180715, end: 20181115
  2. WARFARIN [Suspect]
     Active Substance: WARFARIN
     Indication: COAGULOPATHY
     Dosage: UNK
     Route: 065
  3. TICLOPIDINE [Suspect]
     Active Substance: TICLOPIDINE
     Indication: PRODUCT USED FOR UNKNOWN INDICATION
     Route: 065
  4. ASPIRIN. [Concomitant]
     Active Substance: ASPIRIN
     Indication: PRODUCT USED FOR UNKNOWN INDICATION
     Dosage: UNK
     Route: 065
  5. COSENTYX [Suspect]
     Active Substance: SECUKINUMAB
     Indication: PSORIASIS
     Dosage: 300 MG, QMO
     Route: 058
     Dates: start: 20170307, end: 20180415
  6. COUMADIN [Concomitant]
     Active Substance: WARFARIN SODIUM
     Indication: PRODUCT USED FOR UNKNOWN INDICATION
     Dosage: UNK
     Route: 065

REACTIONS (11)
  - Gastrooesophageal reflux disease [Unknown]
  - Sinus node dysfunction [Recovered/Resolved]
  - Haemorrhoids [Unknown]
  - Ear infection [Unknown]
  - Hypovolaemic shock [Recovered/Resolved]
  - Epigastric discomfort [Recovered/Resolved]
  - Abdominal pain upper [Unknown]
  - Labyrinthitis [Unknown]
  - Influenza [Recovered/Resolved]
  - Eructation [Recovered/Resolved]
  - Cardiac perforation [Recovered/Resolved]

NARRATIVE: CASE EVENT DATE: 2018
